FAERS Safety Report 7382949-3 (Version None)
Quarter: 2011Q1

REPORT INFORMATION
  Report Type: 
  Country: None (occurrence: None)
  Receive Date: 20110328
  Receipt Date: 20110328
  Transmission Date: 20110831
  Serious: Yes (Hospitalization)
  Sender: FDA-Public Use
  Company Number: None

PATIENT
  Sex: Male
  Weight: 91.6 kg

DRUGS (3)
  1. PACLITAXEL [Suspect]
     Dosage: 824 MG
     Dates: end: 20110111
  2. CETUXIMAB (ERBITUX) [Suspect]
     Dosage: 3090 MG
     Dates: end: 20110125
  3. CARBOPLATIN [Suspect]
     Dosage: 1650 MG
     Dates: end: 20110111

REACTIONS (6)
  - PYREXIA [None]
  - MALAISE [None]
  - DISEASE PROGRESSION [None]
  - DYSPNOEA [None]
  - CHILLS [None]
  - COUGH [None]
